FAERS Safety Report 5686067-1 (Version None)
Quarter: 2008Q1

REPORT INFORMATION
  Report Type: 
  Country: None (occurrence: None)
  Receive Date: 20080328
  Receipt Date: 20070710
  Transmission Date: 20080703
  Serious: No
  Sender: FDA-Public Use
  Company Number: US-BAYER-US-2007-025626

PATIENT
  Age: 23 Year
  Sex: Female

DRUGS (1)
  1. MIRENA [Suspect]
     Route: 015
     Dates: start: 20070709, end: 20070709

REACTIONS (3)
  - COMPLICATION OF DEVICE INSERTION [None]
  - HYPERHIDROSIS [None]
  - PROCEDURAL PAIN [None]
